FAERS Safety Report 9280207 (Version 1)
Quarter: 2013Q2

REPORT INFORMATION
  Report Type: Report from Study
  Country: PT (occurrence: PT)
  Receive Date: 20130509
  Receipt Date: 20130509
  Transmission Date: 20140414
  Serious: Yes (Other)
  Sender: FDA-Public Use
  Company Number: PT-ROCHE-1190334

PATIENT
  Age: 58 Year
  Sex: Female
  Weight: 58 kg

DRUGS (4)
  1. VEMURAFENIB [Suspect]
     Indication: MALIGNANT MELANOMA
     Dosage: LAST DOSE PRIOR TO SAE:08/FEB/2013
     Route: 048
     Dates: start: 20130111
  2. FUSIDIC ACID [Concomitant]
     Route: 065
     Dates: start: 20121214
  3. OMEPRAZOL [Concomitant]
     Route: 065
     Dates: start: 20121026
  4. PREDNISOLONE [Concomitant]
     Route: 065
     Dates: start: 20121023

REACTIONS (1)
  - Fibrous histiocytoma [Recovered/Resolved]
